FAERS Safety Report 5082554-8 (Version None)
Quarter: 2006Q3

REPORT INFORMATION
  Report Type: 
  Country: None (occurrence: None)
  Receive Date: 20060817
  Receipt Date: 20060816
  Transmission Date: 20061208
  Serious: Yes (Other)
  Sender: FDA-Public Use
  Company Number: US-GLAXOSMITHKLINE-A0616876A

PATIENT
  Age: 72 Year
  Sex: Female

DRUGS (7)
  1. CITRUCEL CAPLETS [Suspect]
     Indication: DIVERTICULUM
     Dosage: 1CAPL IN THE MORNING
     Route: 048
     Dates: start: 20060701, end: 20060801
  2. CENTRUM [Concomitant]
  3. VITAMIN E [Concomitant]
     Dosage: 400IU PER DAY
  4. ZYRTEC [Concomitant]
     Dosage: 10MG PER DAY
  5. LIPITOR [Concomitant]
     Dosage: 10MG PER DAY
  6. RANITIDINE [Concomitant]
     Dosage: 150MG TWICE PER DAY
  7. LEXAPRO [Concomitant]
     Dosage: 10MG PER DAY

REACTIONS (3)
  - DYSENTERY [None]
  - FAECAL INCONTINENCE [None]
  - FREQUENT BOWEL MOVEMENTS [None]
